FAERS Safety Report 14954207 (Version 2)
Quarter: 2018Q2

REPORT INFORMATION
  Report Type: Spontaneous
  Country: US (occurrence: US)
  Receive Date: 20180530
  Receipt Date: 20180605
  Transmission Date: 20180711
  Serious: No
  Sender: FDA-Public Use
  Company Number: US-009507513-1805USA013272

PATIENT
  Sex: Male

DRUGS (1)
  1. KEYTRUDA [Suspect]
     Active Substance: PEMBROLIZUMAB
     Indication: MALIGNANT MELANOMA
     Dosage: 2 MG/KG WITH A MAXIMUM FLAT DOSE OF 200 MG/EVERY 3 WEEKS
     Route: 042
     Dates: start: 201502, end: 201603

REACTIONS (3)
  - Cortisol increased [Unknown]
  - Hypogeusia [Unknown]
  - Nausea [Unknown]
